FAERS Safety Report 19918877 (Version 3)
Quarter: 2021Q4

REPORT INFORMATION
  Report Type: Spontaneous
  Country: US (occurrence: US)
  Receive Date: 20211005
  Receipt Date: 20211022
  Transmission Date: 20220304
  Serious: No
  Sender: FDA-Public Use
  Company Number: US-LEADINGPHARMA-US-2021LEASPO00292

PATIENT
  Age: 51 Year
  Sex: Female
  Weight: 150 kg

DRUGS (1)
  1. LORAZEPAM [Suspect]
     Active Substance: LORAZEPAM
     Indication: Insomnia
     Route: 048
     Dates: start: 20210920

REACTIONS (5)
  - Drug ineffective for unapproved indication [Recovered/Resolved]
  - Sleep disorder [Recovered/Resolved]
  - Abnormal dreams [Recovered/Resolved]
  - Product physical issue [None]
  - Wrong technique in product usage process [None]

NARRATIVE: CASE EVENT DATE: 20210920
